FAERS Safety Report 6968591-4 (Version None)
Quarter: 2010Q3

REPORT INFORMATION
  Report Type: 
  Country: None (occurrence: None)
  Receive Date: 20100903
  Receipt Date: 20100903
  Transmission Date: 20110219
  Serious: Yes (Other)
  Sender: FDA-Public Use
  Company Number: None

PATIENT
  Age: 65 Year
  Sex: Female
  Weight: 59.4212 kg

DRUGS (1)
  1. NITROFURANTOIN [Suspect]
     Indication: INFECTION
     Dosage: 1 TABLE 2 AM - PM 10 DAYS
     Dates: start: 20100805

REACTIONS (2)
  - BACK PAIN [None]
  - DYSURIA [None]
